FAERS Safety Report 9316407 (Version 1)
Quarter: 2013Q2

REPORT INFORMATION
  Report Type: Spontaneous
  Country: CA (occurrence: CA)
  Receive Date: 20130530
  Receipt Date: 20130530
  Transmission Date: 20140414
  Serious: Yes (Disabling)
  Sender: FDA-Public Use
  Company Number: CA-TEVA-408483USA

PATIENT
  Age: 36 Year
  Sex: Female
  Weight: 102.6 kg

DRUGS (2)
  1. CIPROFLOXACIN [Suspect]
     Dosage: 1000 MILLIGRAM DAILY;
     Route: 048
  2. SYMBICORT 200 TURBUHALER [Concomitant]
     Dosage: POWDER

REACTIONS (4)
  - Dysphagia [Not Recovered/Not Resolved]
  - Eye disorder [Not Recovered/Not Resolved]
  - Nasal disorder [Not Recovered/Not Resolved]
  - VIIth nerve paralysis [Not Recovered/Not Resolved]
